FAERS Safety Report 15504090 (Version 1)
Quarter: 2018Q4

REPORT INFORMATION
  Report Type: Spontaneous
  Country: US (occurrence: US)
  Receive Date: 20181016
  Receipt Date: 20181016
  Transmission Date: 20190205
  Serious: No
  Sender: FDA-Public Use
  Company Number: US-AMGEN INC.-USASP2018132531

PATIENT
  Age: 57 Year
  Sex: Female

DRUGS (3)
  1. OXYGEN. [Concomitant]
     Active Substance: OXYGEN
     Indication: HEADACHE
     Dosage: UNK
  2. AIMOVIG [Suspect]
     Active Substance: ERENUMAB-AOOE
     Indication: PRODUCT USED FOR UNKNOWN INDICATION
     Dosage: 70 MG, UNK
     Route: 065
     Dates: start: 20180814
  3. IMITREX [Concomitant]
     Active Substance: SUMATRIPTAN SUCCINATE
     Indication: HEADACHE
     Dosage: UNK

REACTIONS (2)
  - Drug ineffective [Unknown]
  - Migraine [Unknown]

NARRATIVE: CASE EVENT DATE: 2018
